FAERS Safety Report 14911854 (Version 1)
Quarter: 2018Q2

REPORT INFORMATION
  Report Type: Spontaneous
  Country: US (occurrence: US)
  Receive Date: 20180518
  Receipt Date: 20180518
  Transmission Date: 20180711
  Serious: No
  Sender: FDA-Public Use
  Company Number: US-TEVA-2018-US-892563

PATIENT
  Age: 55 Year
  Sex: Female

DRUGS (2)
  1. DILTIAZEM. [Interacting]
     Active Substance: DILTIAZEM
     Route: 065
  2. ATORVASTATIN CALCIUM. [Suspect]
     Active Substance: ATORVASTATIN CALCIUM
     Indication: HYPERCHOLESTEROLAEMIA
     Route: 065

REACTIONS (2)
  - Drug interaction [Unknown]
  - Pruritus [Unknown]

NARRATIVE: CASE EVENT DATE: 20180507
